FAERS Safety Report 25759521 (Version 1)
Quarter: 2025Q3

REPORT INFORMATION
  Report Type: Other
  Country: CA (occurrence: CA)
  Receive Date: 20250904
  Receipt Date: 20250904
  Transmission Date: 20251020
  Serious: Yes (Other)
  Sender: APOTEX
  Company Number: CA-PGRTD-001148183

PATIENT
  Age: 33 Year
  Sex: Male
  Weight: 106.57 kg

DRUGS (1)
  1. ARIPIPRAZOLE [Suspect]
     Active Substance: ARIPIPRAZOLE
     Indication: Psychiatric symptom
     Route: 048

REACTIONS (3)
  - Vomiting [Recovering/Resolving]
  - Dyspepsia [Recovering/Resolving]
  - Product substitution issue [Recovering/Resolving]
